FAERS Safety Report 6662585-4 (Version None)
Quarter: 2010Q1

REPORT INFORMATION
  Report Type: 
  Country: None (occurrence: None)
  Receive Date: 20100329
  Receipt Date: 20100318
  Transmission Date: 20100710
  Serious: Yes (Hospitalization, Other)
  Sender: FDA-Public Use
  Company Number: A-CH2010-35034

PATIENT
  Age: 16 Year
  Sex: Female
  Weight: 57 kg

DRUGS (14)
  1. TRACLEER [Suspect]
     Indication: PULMONARY HYPERTENSION
     Dosage: 62.5 MG, BID, ORAL ; 62.5 MG, BID, ORAL ; 62.5 MG, BID, ORAL ; 62.5 MG, BID, ORAL
     Route: 048
     Dates: start: 20090824, end: 20090902
  2. TRACLEER [Suspect]
     Indication: PULMONARY HYPERTENSION
     Dosage: 62.5 MG, BID, ORAL ; 62.5 MG, BID, ORAL ; 62.5 MG, BID, ORAL ; 62.5 MG, BID, ORAL
     Route: 048
     Dates: start: 20090905, end: 20090928
  3. TRACLEER [Suspect]
     Indication: PULMONARY HYPERTENSION
     Dosage: 62.5 MG, BID, ORAL ; 62.5 MG, BID, ORAL ; 62.5 MG, BID, ORAL ; 62.5 MG, BID, ORAL
     Route: 048
     Dates: start: 20091004, end: 20091007
  4. TRACLEER [Suspect]
     Indication: PULMONARY HYPERTENSION
     Dosage: 62.5 MG, BID, ORAL ; 62.5 MG, BID, ORAL ; 62.5 MG, BID, ORAL ; 62.5 MG, BID, ORAL
     Route: 048
     Dates: start: 20091013, end: 20091014
  5. BERAPROST SODIUM (BERAPROST SODIUM) [Suspect]
     Dates: end: 20090902
  6. BERAPROST SODIUM (BERAPROST SODIUM) [Suspect]
     Dates: start: 20090907
  7. DIGOXIN [Concomitant]
  8. CARVEDILOL [Concomitant]
  9. CANDESARTAN CILEXTIL (CANDESARTAN CILEXETIL) [Concomitant]
  10. TORSEMIDE [Concomitant]
  11. SPIRONOLACTONE [Concomitant]
  12. PIMOBENDAN (PIMOBENDAN) [Concomitant]
  13. MILRINONE LACTATE [Concomitant]
  14. OXYGEN (OXYGEN) [Concomitant]

REACTIONS (11)
  - ABDOMINAL PAIN [None]
  - ATRIAL FIBRILLATION [None]
  - BLOOD PRESSURE DECREASED [None]
  - COUGH [None]
  - DIZZINESS [None]
  - DRUG INTERACTION [None]
  - DRUG INTOLERANCE [None]
  - FLUSHING [None]
  - HEADACHE [None]
  - MALAISE [None]
  - OFF LABEL USE [None]
